FAERS Safety Report 10218777 (Version 1)
Quarter: 2014Q2

REPORT INFORMATION
  Report Type: Spontaneous
  Country: US (occurrence: None)
  Receive Date: 20140603
  Receipt Date: 20140603
  Transmission Date: 20141212
  Serious: Yes (Other)
  Sender: FDA-Public Use
  Company Number: ADR-2013-01876

PATIENT
  Age: 24 Year
  Sex: Female

DRUGS (1)
  1. LIORESAL INTRATHECAL (BACLOFEN INJECTION) 2000MCG/ML [Suspect]
     Indication: MUSCLE SPASTICITY
     Dates: start: 20130917

REACTIONS (2)
  - Cerebrospinal fluid leakage [None]
  - Pseudomeningocele [None]
